FAERS Safety Report 24595274 (Version 3)
Quarter: 2024Q4

REPORT INFORMATION
  Report Type: Spontaneous
  Country: US (occurrence: US)
  Receive Date: 20241108
  Receipt Date: 20241202
  Transmission Date: 20250115
  Serious: Yes (Other)
  Sender: ABBVIE
  Company Number: US-ABBVIE-5991084

PATIENT
  Age: 34 Year
  Sex: Female
  Weight: 92 kg

DRUGS (12)
  1. LUPRON [Suspect]
     Active Substance: LEUPROLIDE ACETATE
     Indication: Premenstrual dysphoric disorder
     Route: 030
     Dates: start: 20181204, end: 201901
  2. LUPRON [Suspect]
     Active Substance: LEUPROLIDE ACETATE
     Indication: Premedication
  3. KETOCONAZOLE [Concomitant]
     Active Substance: KETOCONAZOLE
     Indication: Product used for unknown indication
  4. PROPRANOLOL [Concomitant]
     Active Substance: PROPRANOLOL HYDROCHLORIDE
     Indication: Heart rate increased
  5. RANITIDINE [Concomitant]
     Active Substance: RANITIDINE
     Indication: Gastritis
  6. ADDERALL [Concomitant]
     Active Substance: AMPHETAMINE ASPARTATE\AMPHETAMINE SULFATE\DEXTROAMPHETAMINE SACCHARATE\DEXTROAMPHETAMINE SULFATE
     Indication: Depression
  7. PROZAC [Concomitant]
     Active Substance: FLUOXETINE HYDROCHLORIDE
     Indication: Depression
  8. ALBUTEROL [Concomitant]
     Active Substance: ALBUTEROL
     Indication: Multiple allergies
  9. GABAPENTIN [Concomitant]
     Active Substance: GABAPENTIN
     Indication: Depression
  10. FLUTICASONE [Concomitant]
     Active Substance: FLUTICASONE
     Indication: Multiple allergies
  11. TRAZODONE [Concomitant]
     Active Substance: TRAZODONE HYDROCHLORIDE
     Indication: Sleep disorder
  12. LOPERAMIDE [Concomitant]
     Active Substance: LOPERAMIDE
     Indication: Diarrhoea

REACTIONS (31)
  - Suicide attempt [Recovered/Resolved]
  - Fall [Recovered/Resolved]
  - Anterograde amnesia [Not Recovered/Not Resolved]
  - Head injury [Recovered/Resolved]
  - Amnesia [Not Recovered/Not Resolved]
  - Dystonic tremor [Not Recovered/Not Resolved]
  - Dystonia [Not Recovered/Not Resolved]
  - Deafness neurosensory [Not Recovered/Not Resolved]
  - Depression [Not Recovered/Not Resolved]
  - Torticollis [Not Recovered/Not Resolved]
  - Cognitive disorder [Not Recovered/Not Resolved]
  - Tinnitus [Not Recovered/Not Resolved]
  - Muscular weakness [Not Recovered/Not Resolved]
  - Anhedonia [Not Recovered/Not Resolved]
  - Muscle spasticity [Not Recovered/Not Resolved]
  - Pain [Recovering/Resolving]
  - Pain [Not Recovered/Not Resolved]
  - Migraine [Not Recovered/Not Resolved]
  - Balance disorder [Not Recovered/Not Resolved]
  - Kyphosis [Not Recovered/Not Resolved]
  - Anxiety [Not Recovered/Not Resolved]
  - Muscle atrophy [Not Recovered/Not Resolved]
  - Hot flush [Not Recovered/Not Resolved]
  - Winged scapula [Not Recovered/Not Resolved]
  - Bile duct stenosis [Not Recovered/Not Resolved]
  - Off label use [Not Recovered/Not Resolved]
  - Road traffic accident [Recovered/Resolved]
  - Occipital neuralgia [Not Recovered/Not Resolved]
  - Cystocele [Unknown]
  - Urinary incontinence [Unknown]
  - Brain injury [Unknown]

NARRATIVE: CASE EVENT DATE: 20181201
